FAERS Safety Report 20168693 (Version 10)
Quarter: 2023Q1

REPORT INFORMATION
  Report Type: Spontaneous
  Country: CA (occurrence: CA)
  Receive Date: 20211210
  Receipt Date: 20230310
  Transmission Date: 20230418
  Serious: Yes (Hospitalization)
  Sender: FDA-Public Use
  Company Number: CA-CELLTRION INC.-2021CA016936

PATIENT

DRUGS (38)
  1. INFLECTRA [Suspect]
     Active Substance: INFLIXIMAB-DYYB
     Indication: Ankylosing spondylitis
     Dosage: 180 MG, EVERY 0, 2, 6 WEEKS, THEN EVERY 8 WEEKS
     Route: 042
     Dates: start: 20170407, end: 20180115
  2. INFLECTRA [Suspect]
     Active Substance: INFLIXIMAB-DYYB
     Dosage: 180 MG, EVERY 0, 2, 6 WEEKS, THEN EVERY 8 WEEKS
     Route: 042
     Dates: start: 20180115
  3. INFLECTRA [Suspect]
     Active Substance: INFLIXIMAB-DYYB
     Dosage: 190 MG, EVERY 8 WEEKS
     Route: 042
     Dates: start: 20180319
  4. INFLECTRA [Suspect]
     Active Substance: INFLIXIMAB-DYYB
     Dosage: 190 MG, EVERY 8 WEEKS
     Route: 042
     Dates: start: 20210708
  5. INFLECTRA [Suspect]
     Active Substance: INFLIXIMAB-DYYB
     Dosage: 190 MG, EVERY 8 WEEKS
     Route: 042
     Dates: start: 20211004
  6. INFLECTRA [Suspect]
     Active Substance: INFLIXIMAB-DYYB
     Dosage: 190 MG, EVERY 8 WEEKS
     Route: 042
     Dates: start: 20220105
  7. INFLECTRA [Suspect]
     Active Substance: INFLIXIMAB-DYYB
     Dosage: 190 MG, EVERY 8 WEEKS
     Route: 042
     Dates: start: 20220302
  8. INFLECTRA [Suspect]
     Active Substance: INFLIXIMAB-DYYB
     Dosage: 190 MG, EVERY 8 WEEKS
     Route: 042
     Dates: start: 20220427
  9. INFLECTRA [Suspect]
     Active Substance: INFLIXIMAB-DYYB
     Dosage: 190 MG, EVERY 8 WEEKS
     Route: 042
     Dates: start: 20220622
  10. INFLECTRA [Suspect]
     Active Substance: INFLIXIMAB-DYYB
     Dosage: 190 MG, EVERY 8 WEEKS
     Route: 042
     Dates: start: 20220817
  11. INFLECTRA [Suspect]
     Active Substance: INFLIXIMAB-DYYB
     Dosage: 190 MG, EVERY 8 WEEKS
     Route: 042
     Dates: start: 20221019
  12. INFLECTRA [Suspect]
     Active Substance: INFLIXIMAB-DYYB
     Dosage: 190 MG, EVERY 8 WEEKS
     Route: 042
     Dates: start: 20221214
  13. INFLECTRA [Suspect]
     Active Substance: INFLIXIMAB-DYYB
     Dosage: 190 MG, EVERY 8 WEEKS
     Route: 042
     Dates: start: 20230301
  14. ACETAMINOPHEN [Concomitant]
     Active Substance: ACETAMINOPHEN
     Indication: Premedication
     Dosage: 650 MG
     Route: 048
     Dates: start: 20220427, end: 20220427
  15. ACETAMINOPHEN [Concomitant]
     Active Substance: ACETAMINOPHEN
     Dosage: 500 MG
     Dates: start: 20220817, end: 20220817
  16. BENADRYL [Concomitant]
     Active Substance: DIPHENHYDRAMINE HYDROCHLORIDE
     Indication: Premedication
     Dosage: 50 MG
     Dates: start: 20220105, end: 20220105
  17. BENADRYL [Concomitant]
     Active Substance: DIPHENHYDRAMINE HYDROCHLORIDE
     Dosage: 50 MG, PRE MEDICATION
     Dates: start: 20220302, end: 20220302
  18. BENADRYL [Concomitant]
     Active Substance: DIPHENHYDRAMINE HYDROCHLORIDE
     Dosage: 50 MG
     Dates: start: 20221019, end: 20221019
  19. BENADRYL [Concomitant]
     Active Substance: DIPHENHYDRAMINE HYDROCHLORIDE
     Dosage: 50MG PER OS
     Route: 048
     Dates: start: 20221214, end: 20221214
  20. DIPHENHYDRAMINE [Concomitant]
     Active Substance: DIPHENHYDRAMINE
     Indication: Premedication
     Dosage: 50 MG
     Route: 048
     Dates: start: 20220427, end: 20220427
  21. DIPHENHYDRAMINE [Concomitant]
     Active Substance: DIPHENHYDRAMINE
     Dosage: 50 MG
     Dates: start: 20220817, end: 20220817
  22. HYDROCORTISONE [Concomitant]
     Active Substance: HYDROCORTISONE
     Indication: Premedication
     Dosage: 100 MG
     Dates: start: 20220817, end: 20220817
  23. METHOTREXATE [Concomitant]
     Active Substance: METHOTREXATE
     Dosage: 1 DF, UNK, DOSAGE INFORMATION IS UNKNOWN
     Route: 048
     Dates: start: 2016
  24. PREDNISONE [Concomitant]
     Active Substance: PREDNISONE
     Dosage: UNK
  25. PREDNISONE [Concomitant]
     Active Substance: PREDNISONE
     Dosage: 5 MG, 1X/DAY
     Route: 048
     Dates: start: 2016
  26. SOLU-CORTEF [Concomitant]
     Active Substance: HYDROCORTISONE SODIUM SUCCINATE
     Indication: Premedication
     Dosage: 1000 MG, PRE INFUSION OF INFLECTRA
     Route: 042
     Dates: start: 20171120
  27. SOLU-CORTEF [Concomitant]
     Active Substance: HYDROCORTISONE SODIUM SUCCINATE
     Dosage: 100 MG, PRE INFUSION OF INFLECTRA
     Route: 042
     Dates: start: 20171120
  28. SOLU-CORTEF [Concomitant]
     Active Substance: HYDROCORTISONE SODIUM SUCCINATE
     Dosage: 100 MG
     Route: 042
     Dates: start: 20220105
  29. SOLU-CORTEF [Concomitant]
     Active Substance: HYDROCORTISONE SODIUM SUCCINATE
     Dosage: 100 MG, PRE MEDICATION
     Route: 042
     Dates: start: 20220302, end: 20220302
  30. SOLU-CORTEF [Concomitant]
     Active Substance: HYDROCORTISONE SODIUM SUCCINATE
     Dosage: 100 MG, PRE MEDICATION
     Route: 042
     Dates: start: 20220427, end: 20220427
  31. SOLU-CORTEF [Concomitant]
     Active Substance: HYDROCORTISONE SODIUM SUCCINATE
     Dosage: 100 MG
     Dates: start: 20221019, end: 20221019
  32. SOLU-CORTEF [Concomitant]
     Active Substance: HYDROCORTISONE SODIUM SUCCINATE
     Dosage: 100 MG
     Route: 042
     Dates: start: 20221214, end: 20221214
  33. TYLENOL EXTRA STRENGTH [Concomitant]
     Active Substance: ACETAMINOPHEN
     Dosage: UNK
  34. TYLENOL EXTRA STRENGTH [Concomitant]
     Active Substance: ACETAMINOPHEN
     Dosage: 1 DF, DOSAGE INFORMATION NOT AVAILABLE
     Route: 065
  35. TYLENOL [Concomitant]
     Active Substance: ACETAMINOPHEN
     Indication: Premedication
     Dosage: 500 MG
     Dates: start: 20220105, end: 20220105
  36. TYLENOL [Concomitant]
     Active Substance: ACETAMINOPHEN
     Dosage: 500 MG, PRE MEDICATION
     Dates: start: 20220302, end: 20220302
  37. TYLENOL [Concomitant]
     Active Substance: ACETAMINOPHEN
     Dosage: 500 MG
     Dates: start: 20221019, end: 20221019
  38. TYLENOL [Concomitant]
     Active Substance: ACETAMINOPHEN
     Dosage: 500MG PER OS
     Route: 048
     Dates: start: 20221214, end: 20221214

REACTIONS (5)
  - Gait disturbance [Not Recovered/Not Resolved]
  - Blood pressure fluctuation [Not Recovered/Not Resolved]
  - Hypotension [Unknown]
  - Off label use [Unknown]
  - Inappropriate schedule of product administration [Unknown]

NARRATIVE: CASE EVENT DATE: 20210101
